FAERS Safety Report 8922171 (Version 1)
Quarter: 2012Q4

REPORT INFORMATION
  Report Type: Spontaneous
  Country: JP (occurrence: None)
  Receive Date: 20121109
  Receipt Date: 20121109
  Transmission Date: 20130627
  Serious: Yes (Other)
  Sender: FDA-Public Use
  Company Number: 2012S1000263

PATIENT

DRUGS (2)
  1. CUBICIN [Suspect]
     Indication: POSTOPERATIVE WOUND INFECTION
     Route: 041
  2. LINEZOLID [Suspect]
     Indication: POSTOPERATIVE WOUND INFECTION
     Dosage: U U; UNK; PARN

REACTIONS (3)
  - Alanine aminotransferase increased [None]
  - Liver function test abnormal [None]
  - Off label use [None]
